FAERS Safety Report 22223397 (Version 2)
Quarter: 2023Q2

REPORT INFORMATION
  Report Type: Spontaneous
  Country: US (occurrence: US)
  Receive Date: 20230418
  Receipt Date: 20230424
  Transmission Date: 20230721
  Serious: No
  Sender: FDA-Public Use
  Company Number: US-BIOGEN-2023BI01199810

PATIENT
  Age: 54 Year
  Sex: Female

DRUGS (1)
  1. TYSABRI [Suspect]
     Active Substance: NATALIZUMAB
     Indication: Multiple sclerosis
     Route: 050
     Dates: start: 20210430

REACTIONS (5)
  - Feeling hot [Unknown]
  - Infusion site pain [Unknown]
  - Infusion site bruising [Unknown]
  - Flushing [Unknown]
  - Fatigue [Unknown]

NARRATIVE: CASE EVENT DATE: 20230411
